FAERS Safety Report 9270605 (Version 1)
Quarter: 2013Q2

REPORT INFORMATION
  Report Type: Spontaneous
  Country: US (occurrence: US)
  Receive Date: 20130503
  Receipt Date: 20130503
  Transmission Date: 20140414
  Serious: No
  Sender: FDA-Public Use
  Company Number: US-ASTRAZENECA-2013SE27894

PATIENT
  Age: 70 Year
  Sex: Female
  Weight: 75.8 kg

DRUGS (2)
  1. ARIMIDEX [Suspect]
     Indication: BREAST CANCER
     Route: 048
     Dates: start: 201303
  2. ARIMIDEX [Suspect]
     Indication: BREAST CANCER
     Route: 048

REACTIONS (2)
  - Hypertension [Recovering/Resolving]
  - Tinnitus [Recovering/Resolving]
